FAERS Safety Report 7737625-1 (Version None)
Quarter: 2011Q3

REPORT INFORMATION
  Report Type: 
  Country: None (occurrence: None)
  Receive Date: 20110908
  Receipt Date: 20110830
  Transmission Date: 20111222
  Serious: Yes (Life-Threatening, Hospitalization, Other)
  Sender: FDA-Public Use
  Company Number: NL-ASTRAZENECA-2011SE52172

PATIENT
  Age: 34 Year
  Sex: Male

DRUGS (10)
  1. LORAZEPAM [Concomitant]
     Route: 048
     Dates: start: 20110101
  2. DIAZEPAM [Concomitant]
     Route: 048
  3. OXAZEPAM [Concomitant]
     Route: 048
     Dates: start: 20110101
  4. DOMPERIDON [Concomitant]
     Route: 048
  5. SEROQUEL [Suspect]
     Route: 048
     Dates: start: 20110101
  6. CLONAZEPAM [Concomitant]
     Route: 048
  7. PANTOPRAZOLE [Concomitant]
     Route: 048
  8. SEROQUEL [Suspect]
     Indication: MENTAL DISORDER
     Dosage: HIGH DOSE AS SUICIDE ATTEMPT
     Route: 048
  9. PAROXETINE HCL [Concomitant]
     Route: 048
     Dates: start: 20110101
  10. PROMETHAZINE [Concomitant]
     Route: 048

REACTIONS (3)
  - ILEUS PARALYTIC [None]
  - SUICIDE ATTEMPT [None]
  - PANCREATITIS [None]
